FAERS Safety Report 5133287-0 (Version None)
Quarter: 2006Q4

REPORT INFORMATION
  Report Type: 
  Country: None (occurrence: None)
  Receive Date: 20060831
  Receipt Date: 20060713
  Transmission Date: 20070319
  Serious: No
  Sender: FDA-Public Use
  Company Number: 2006-BP-07343BP

PATIENT
  Age: 52 Year
  Sex: Female
  Weight: 51.3 kg

DRUGS (4)
  1. SPIRIVA [Suspect]
     Indication: CHRONIC OBSTRUCTIVE PULMONARY DISEASE
     Dosage: 18 MCG (18 MCG,QAM),IH
     Dates: start: 20060601, end: 20060601
  2. ALBUTEROL [Concomitant]
  3. WELLBUTRIN XL [Concomitant]
  4. SEREVENT [Concomitant]

REACTIONS (1)
  - PARANOIA [None]
